FAERS Safety Report 8322503-X (Version None)
Quarter: 2012Q2

REPORT INFORMATION
  Report Type: 
  Country: None (occurrence: None)
  Receive Date: 20120430
  Receipt Date: 20100201
  Transmission Date: 20120825
  Serious: No
  Sender: FDA-Public Use
  Company Number: US-TEVA-2010000603

PATIENT
  Sex: Male
  Weight: 93.07 kg

DRUGS (3)
  1. NUVIGIL [Suspect]
     Dosage: 75 MILLIGRAM;
     Route: 048
     Dates: start: 20100131
  2. AMBIEN CR [Concomitant]
     Indication: SLEEP DISORDER
     Dates: start: 20100101
  3. NUVIGIL [Suspect]
     Indication: SLEEP APNOEA SYNDROME
     Dosage: 150 MILLIGRAM;
     Route: 048
     Dates: start: 20100129, end: 20100129

REACTIONS (6)
  - ENERGY INCREASED [None]
  - ABDOMINAL DISTENSION [None]
  - DECREASED APPETITE [None]
  - WEIGHT DECREASED [None]
  - DIZZINESS [None]
  - INTENTIONAL DRUG MISUSE [None]
